FAERS Safety Report 5200169-5 (Version None)
Quarter: 2006Q4

REPORT INFORMATION
  Report Type: 
  Country: None (occurrence: None)
  Receive Date: 20061229
  Receipt Date: 20061218
  Transmission Date: 20070319
  Serious: Yes (Hospitalization)
  Sender: FDA-Public Use
  Company Number: VNL_0288_2006

PATIENT
  Age: 69 Year
  Sex: Male
  Weight: 108.8633 kg

DRUGS (15)
  1. APOKYN [Suspect]
     Indication: PARKINSON'S DISEASE
     Dosage: 0.2 ML BID SC
     Route: 058
     Dates: start: 20061103
  2. APOKYN [Suspect]
     Indication: PARKINSON'S DISEASE
     Dosage: FD UNK SC
     Route: 058
     Dates: start: 20051101, end: 20060201
  3. SEROQUEL [Concomitant]
  4. ARICEPT [Concomitant]
  5. SINEMET CR [Concomitant]
  6. TRIHEXYPHENIDYL HCL [Concomitant]
  7. COMTAN [Concomitant]
  8. PARCOPA [Concomitant]
  9. AVODART [Concomitant]
  10. ASPIRIN [Concomitant]
  11. FLOMAX [Concomitant]
  12. ASCORBIC ACID [Concomitant]
  13. VITAMIN E [Concomitant]
  14. MULTI-VITAMIN [Concomitant]
  15. COD LIVER OIL [Concomitant]

REACTIONS (5)
  - AGGRESSION [None]
  - ANURIA [None]
  - CATHETER RELATED COMPLICATION [None]
  - NAUSEA [None]
  - URINARY TRACT DISORDER [None]
